FAERS Safety Report 18231482 (Version 1)
Quarter: 2020Q3

REPORT INFORMATION
  Report Type: Spontaneous
  Country: US (occurrence: US)
  Receive Date: 20200904
  Receipt Date: 20200904
  Transmission Date: 20201103
  Serious: No
  Sender: FDA-Public Use
  Company Number: US-B.I. PHARMACEUTICALS,INC./RIDGEFIELD-2020-BI-044937

PATIENT
  Age: 50 Year
  Sex: Male

DRUGS (2)
  1. GILOTRIF [Suspect]
     Active Substance: AFATINIB
     Indication: NON-SMALL CELL LUNG CANCER
     Route: 048
     Dates: start: 20200720
  2. GILOTRIF [Suspect]
     Active Substance: AFATINIB
     Indication: METASTASES TO LIVER

REACTIONS (1)
  - Haemoglobin decreased [Not Recovered/Not Resolved]
